FAERS Safety Report 4927028-7 (Version None)
Quarter: 2006Q1

REPORT INFORMATION
  Report Type: 
  Country: None (occurrence: None)
  Receive Date: 20060228
  Receipt Date: 20051007
  Transmission Date: 20060701
  Serious: No
  Sender: FDA-Public Use
  Company Number: US-GLAXOSMITHKLINE-A0577539A

PATIENT
  Age: 22 Year
  Sex: Female

DRUGS (9)
  1. LAMICTAL [Suspect]
     Indication: BIPOLAR DISORDER
     Dosage: 200MG PER DAY
     Route: 048
     Dates: start: 20050601
  2. OVCON-35 [Concomitant]
  3. WELLBUTRIN XL [Concomitant]
  4. CONCERTA [Concomitant]
  5. SEROQUEL [Concomitant]
  6. CENTRUM MULTIVITAMIN [Concomitant]
  7. VIT E [Concomitant]
  8. ZYRTEC [Concomitant]
  9. LEVORA 0.15/30-21 [Concomitant]

REACTIONS (2)
  - CRYING [None]
  - METRORRHAGIA [None]
